FAERS Safety Report 18436541 (Version 1)
Quarter: 2020Q4

REPORT INFORMATION
  Report Type: Spontaneous
  Country: US (occurrence: US)
  Receive Date: 20201028
  Receipt Date: 20201028
  Transmission Date: 20210114
  Serious: Yes (Hospitalization)
  Sender: FDA-Public Use
  Company Number: None

PATIENT
  Age: 66 Year
  Sex: Female
  Weight: 66.5 kg

DRUGS (12)
  1. LENVATINIB [Suspect]
     Active Substance: LENVATINIB
     Route: 048
     Dates: start: 20201006, end: 20201009
  2. OMEPRAZOLE 20MG [Concomitant]
     Active Substance: OMEPRAZOLE
  3. DIAZEPAM 10MG [Concomitant]
     Active Substance: DIAZEPAM
  4. DULOXETINE 60MG [Concomitant]
     Active Substance: DULOXETINE
  5. ATORVASTATIN 20MG [Concomitant]
     Active Substance: ATORVASTATIN
  6. BUPROPION XL 300MG [Concomitant]
     Active Substance: BUPROPION
  7. CHOLECALCIFEROL 2000 UNITS [Concomitant]
  8. DESMOPRESSIN 0.1MG [Concomitant]
  9. HYDROCORTISONE 10MG [Concomitant]
  10. HYDROCORTISONE 5MG [Concomitant]
  11. LEVOTHYROXINE 100MCG [Concomitant]
     Active Substance: LEVOTHYROXINE
  12. NYSTATIN 100,000 UNIT/ML SUSPENSION [Concomitant]

REACTIONS (6)
  - Chest discomfort [None]
  - Eye disorder [None]
  - Encephalopathy [None]
  - Unresponsive to stimuli [None]
  - Muscle twitching [None]
  - Moaning [None]

NARRATIVE: CASE EVENT DATE: 20201009
